FAERS Safety Report 8242081-3 (Version None)
Quarter: 2012Q1

REPORT INFORMATION
  Report Type: 
  Country: None (occurrence: None)
  Receive Date: 20120329
  Receipt Date: 20120321
  Transmission Date: 20120608
  Serious: No
  Sender: FDA-Public Use
  Company Number: US-BIOGENIDEC-2012BI010101

PATIENT
  Age: 50 Year
  Sex: Female

DRUGS (1)
  1. AVONEX [Suspect]
     Indication: MULTIPLE SCLEROSIS
     Route: 030
     Dates: start: 20071019

REACTIONS (6)
  - ASTHENIA [None]
  - BALANCE DISORDER [None]
  - MUSCLE SPASTICITY [None]
  - MUSCLE TIGHTNESS [None]
  - MUSCLE SPASMS [None]
  - SLEEP DISORDER [None]
